FAERS Safety Report 6211392-5 (Version None)
Quarter: 2009Q2

REPORT INFORMATION
  Report Type: 
  Country: None (occurrence: None)
  Receive Date: 20090602
  Receipt Date: 20090522
  Transmission Date: 20091009
  Serious: Yes (Other)
  Sender: FDA-Public Use
  Company Number: DE-ELI_LILLY_AND_COMPANY-DE200905004678

PATIENT
  Age: 16 Year
  Sex: Male

DRUGS (2)
  1. STRATTERA [Suspect]
     Indication: ATTENTION DEFICIT/HYPERACTIVITY DISORDER
     Dosage: 40 MG, DAILY (1/D)
     Route: 048
     Dates: start: 20081201
  2. CONCERTA [Concomitant]
     Dosage: 36 MG, UNKNOWN
     Route: 048
     Dates: start: 20090213

REACTIONS (3)
  - AGITATION [None]
  - HOMICIDAL IDEATION [None]
  - SCHIZOPHRENIA [None]
